FAERS Safety Report 17523240 (Version 1)
Quarter: 2020Q1

REPORT INFORMATION
  Report Type: Spontaneous
  Country: US (occurrence: US)
  Receive Date: 20200311
  Receipt Date: 20200311
  Transmission Date: 20200409
  Serious: No
  Sender: FDA-Public Use
  Company Number: NVSC2020US068354

PATIENT
  Age: 37 Year
  Sex: Female

DRUGS (2)
  1. PIQRAY [Suspect]
     Active Substance: ALPELISIB
     Indication: PIK3CA-ACTIVATED MUTATION
  2. PIQRAY [Suspect]
     Active Substance: ALPELISIB
     Indication: COLORECTAL CANCER
     Dosage: UNK
     Route: 048

REACTIONS (1)
  - Rash [Unknown]
